FAERS Safety Report 15088001 (Version 1)
Quarter: 2018Q2

REPORT INFORMATION
  Report Type: Spontaneous
  Country: US (occurrence: US)
  Receive Date: 20180629
  Receipt Date: 20180629
  Transmission Date: 20180711
  Serious: No
  Sender: FDA-Public Use
  Company Number: US-GLENMARK PHARMACEUTICALS-2018GMK030738

PATIENT

DRUGS (1)
  1. MUPIROCIN. [Suspect]
     Active Substance: MUPIROCIN
     Indication: POSTOPERATIVE CARE
     Dosage: 1 DF, BID
     Route: 045
     Dates: start: 20171123, end: 20180109

REACTIONS (9)
  - Incorrect route of drug administration [Unknown]
  - Skin exfoliation [Recovered/Resolved]
  - Dyspnoea [Recovered/Resolved]
  - Incorrect drug administration duration [Unknown]
  - Dizziness [Recovered/Resolved]
  - Pruritus [Recovered/Resolved]
  - Lip exfoliation [Recovered/Resolved]
  - Product use in unapproved indication [Unknown]
  - Paraesthesia oral [Recovered/Resolved]

NARRATIVE: CASE EVENT DATE: 201711
